FAERS Safety Report 9301060 (Version 2)
Quarter: 2013Q2

REPORT INFORMATION
  Report Type: Spontaneous
  Country: US (occurrence: US)
  Receive Date: 20130521
  Receipt Date: 20130606
  Transmission Date: 20140414
  Serious: No
  Sender: FDA-Public Use
  Company Number: US-PFIZER INC-2013154004

PATIENT
  Age: 74 Year
  Sex: Male

DRUGS (4)
  1. SUTENT [Suspect]
     Indication: RENAL CELL CARCINOMA
     Dosage: 50 MG, 1X/DAY (DAILY)
     Route: 048
     Dates: start: 20081216
  2. LISINOPRIL [Concomitant]
     Dosage: UNK
  3. MINOXIDIL [Concomitant]
     Dosage: UNK
  4. CALCIUM ACETATE [Concomitant]
     Dosage: UNK

REACTIONS (1)
  - Diarrhoea [Unknown]
